FAERS Safety Report 10097277 (Version 2)
Quarter: 2014Q2

REPORT INFORMATION
  Report Type: Report from Study
  Country: US (occurrence: US)
  Receive Date: 20140422
  Receipt Date: 20140604
  Transmission Date: 20141212
  Serious: Yes (Hospitalization)
  Sender: FDA-Public Use
  Company Number: PHEH2014US007879

PATIENT
  Age: 8 Year
  Sex: Female
  Weight: 57 kg

DRUGS (8)
  1. TOBI [Suspect]
     Indication: CYSTIC FIBROSIS
     Dosage: 300 MG, BID (300MG/5ML TWICE A DAY)
     Route: 055
     Dates: start: 201001, end: 2013
  2. TOBI [Suspect]
     Indication: LUNG DISORDER
     Dosage: UNK UKN, UNK
     Dates: start: 201302
  3. TOBI PODHALER [Suspect]
     Indication: CYSTIC FIBROSIS
     Dosage: 112 MG, BID
     Route: 055
     Dates: start: 2013
  4. TOBI PODHALER [Suspect]
     Indication: LUNG DISORDER
  5. PULMOZYME [Concomitant]
     Dosage: UNK
  6. ALBUTEROL [Concomitant]
     Dosage: UNK
  7. CREON [Concomitant]
     Dosage: UNK
  8. AZITHROMYCIN [Concomitant]
     Dosage: UNK

REACTIONS (1)
  - Cystic fibrosis [Not Recovered/Not Resolved]
